FAERS Safety Report 5089006-X (Version None)
Quarter: 2006Q3

REPORT INFORMATION
  Report Type: 
  Country: None (occurrence: None)
  Receive Date: 20060822
  Receipt Date: 20060811
  Transmission Date: 20061208
  Serious: Yes (Other)
  Sender: FDA-Public Use
  Company Number: 228656

PATIENT
  Age: 70 Year
  Sex: Male
  Weight: 83 kg

DRUGS (7)
  1. AVASTIN [Suspect]
     Indication: PROSTATE CANCER
     Dosage: 860 MG, Q2W, INTRAVENOUS
     Route: 042
     Dates: start: 20060601, end: 20060727
  2. NORVASC [Concomitant]
  3. MAXZIDE [Concomitant]
  4. ZOLADEX [Concomitant]
  5. CASODEX [Concomitant]
  6. MG CITRATE (MAGNESIUM CITRATE) [Concomitant]
  7. METHYL SULFONYL METHANE (METHYL SULFONYL METHANE) [Concomitant]

REACTIONS (2)
  - ALANINE AMINOTRANSFERASE INCREASED [None]
  - ASPARTATE AMINOTRANSFERASE INCREASED [None]
